FAERS Safety Report 4554640-X (Version None)
Quarter: 2005Q1

REPORT INFORMATION
  Report Type: 
  Country: None (occurrence: None)
  Receive Date: 20041227
  Receipt Date: 20041123
  Transmission Date: 20050727
  Serious: No
  Sender: FDA-Public Use
  Company Number: US100584

PATIENT
  Age: 44 Year
  Sex: Male
  Weight: 116 kg

DRUGS (7)
  1. SENSIPAR [Suspect]
     Indication: HYPERPARATHYROIDISM SECONDARY
     Dosage: 90 MG, 1 IN 1 DAYS
     Dates: start: 20040601
  2. EPOGEN [Concomitant]
  3. SEVELAMER HCL [Concomitant]
  4. DOXERCALCEROL [Concomitant]
  5. BENAZEPRIL HCL [Concomitant]
  6. FELODIPINE [Concomitant]
  7. PAROXETINE HYDROCHLORIDE [Concomitant]

REACTIONS (1)
  - BLOOD ALKALINE PHOSPHATASE INCREASED [None]
